FAERS Safety Report 6684793-9 (Version None)
Quarter: 2010Q2

REPORT INFORMATION
  Report Type: 
  Country: None (occurrence: None)
  Receive Date: 20100416
  Receipt Date: 20100412
  Transmission Date: 20101027
  Serious: Yes (Hospitalization, Other)
  Sender: FDA-Public Use
  Company Number: US-ELI_LILLY_AND_COMPANY-US200908005989

PATIENT
  Sex: Male
  Weight: 77.098 kg

DRUGS (28)
  1. BYETTA [Suspect]
     Dosage: 5 UG, UNKNOWN
     Dates: start: 20060201, end: 20060301
  2. BYETTA [Suspect]
     Dosage: 10 UG, 2/D
     Dates: start: 20060301, end: 20071101
  3. TOPAMAX [Concomitant]
     Dosage: 150 MG, EACH EVENING
     Dates: start: 20060401
  4. TOPAMAX [Concomitant]
     Dosage: 100 MG, EACH EVENING
     Dates: end: 20090201
  5. SIMVASTATIN [Concomitant]
     Indication: BLOOD CHOLESTEROL INCREASED
     Dosage: 80 MG, DAILY (1/D)
     Dates: start: 20060401
  6. CITALOPRAM HYDROBROMIDE [Concomitant]
     Indication: DEPRESSION
     Dosage: UNK, UNKNOWN
     Dates: start: 20070401, end: 20071101
  7. LISINOPRIL [Concomitant]
     Indication: HYPERTENSION
     Dosage: UNK, DAILY (1/D)
     Dates: start: 20070401, end: 20080601
  8. METFORMIN [Concomitant]
     Dosage: 850 MG, 4/D
     Dates: start: 20040701, end: 20071101
  9. DEXEDRINE [Concomitant]
     Dosage: 30 MG, EACH MORNING
  10. DEXEDRINE [Concomitant]
     Dosage: 50 MG, EACH EVENING
  11. DURAGESIC-100 [Concomitant]
     Dosage: 150 UG, QOD
  12. LEVOXYL [Concomitant]
     Dosage: 175 UG, DAILY (1/D)
  13. CYMBALTA [Concomitant]
     Dosage: 30 MG, 4/D
  14. ACTOS                                   /AUS/ [Concomitant]
     Dosage: 10 MG, DAILY (1/D)
  15. CYTOMEL [Concomitant]
     Dosage: 12.5 UG, EACH MORNING
  16. VITAMIN B-12 [Concomitant]
     Dosage: UNK, DAILY (1/D)
  17. FOLIC ACID [Concomitant]
     Dosage: UNK, DAILY (1/D)
  18. ASPIRIN [Concomitant]
     Dosage: 325 MG, DAILY (1/D)
  19. MULTI-VITAMIN [Concomitant]
     Dosage: UNK, DAILY (1/D)
  20. ANDROGEL [Concomitant]
     Dosage: UNK, UNKNOWN
  21. PROVIGIL [Concomitant]
     Dosage: 100 MG, UNKNOWN
  22. ALTACE [Concomitant]
     Dosage: 10 MG, UNKNOWN
  23. OXYCODONE HCL AND ACETAMINOPHEN [Concomitant]
     Dosage: UNK, UNKNOWN
  24. CLINDAMYCIN [Concomitant]
     Dosage: UNK, UNKNOWN
  25. DOXYCYCLINE [Concomitant]
     Dosage: 100 MG, UNKNOWN
  26. PRANDIN [Concomitant]
     Dosage: 2 MG, UNKNOWN
  27. MIRTAZAPINE [Concomitant]
     Dosage: 15 MG, UNKNOWN
  28. GABAPENTIN [Concomitant]
     Dosage: 300 MG, UNKNOWN

REACTIONS (1)
  - PANCREATITIS ACUTE [None]
